FAERS Safety Report 19435676 (Version 1)
Quarter: 2021Q2

REPORT INFORMATION
  Report Type: Spontaneous
  Country: CA (occurrence: CA)
  Receive Date: 20210618
  Receipt Date: 20210618
  Transmission Date: 20210717
  Serious: Yes (Life-Threatening, Hospitalization)
  Sender: FDA-Public Use
  Company Number: CA-BAYER-2021-158161

PATIENT
  Sex: Female

DRUGS (1)
  1. GADOVIST [Suspect]
     Active Substance: GADOBUTROL
     Dosage: UNK UNK, ONCE

REACTIONS (5)
  - Dyspepsia [Unknown]
  - Hypersensitivity [Unknown]
  - Cough [Unknown]
  - Urticaria [Unknown]
  - Chest discomfort [Unknown]
